FAERS Safety Report 21443936 (Version 2)
Quarter: 2022Q4

REPORT INFORMATION
  Report Type: Report from Study
  Country: US (occurrence: US)
  Receive Date: 20221012
  Receipt Date: 20221206
  Transmission Date: 20230113
  Serious: No
  Sender: FDA-Public Use
  Company Number: US-ABBVIE-4150256

PATIENT
  Age: 39 Year
  Sex: Male

DRUGS (2)
  1. SKYRIZI [Suspect]
     Active Substance: RISANKIZUMAB-RZAA
     Indication: Psoriasis
     Dosage: WEEK 0?LAST ADMIN DATE:2022? FORM STRENGTH: 150 MILLIGRAM
     Route: 058
     Dates: start: 20220913
  2. SKYRIZI [Suspect]
     Active Substance: RISANKIZUMAB-RZAA
     Dosage: WEAK 4? FORM STRENGTH: 150 MILLIGRAM
     Route: 058
     Dates: start: 20221011

REACTIONS (3)
  - Fatigue [Unknown]
  - Psoriatic arthropathy [Unknown]
  - Nasopharyngitis [Unknown]

NARRATIVE: CASE EVENT DATE: 20220901
